FAERS Safety Report 5356876-7 (Version None)
Quarter: 2007Q2

REPORT INFORMATION
  Report Type: 
  Country: None (occurrence: None)
  Receive Date: 20070530
  Receipt Date: 20070314
  Transmission Date: 20071010
  Serious: Yes (Other)
  Sender: FDA-Public Use
  Company Number: US200701004615

PATIENT
  Sex: Female
  Weight: 71.7 kg

DRUGS (1)
  1. ZYPREXA [Suspect]
     Indication: ANXIETY
     Dates: start: 19960101, end: 20060101

REACTIONS (5)
  - BLOOD TRIGLYCERIDES INCREASED [None]
  - DIABETES MELLITUS [None]
  - HYPERCALCAEMIA [None]
  - HYPOGLYCAEMIA [None]
  - PANCREATITIS [None]
